FAERS Safety Report 24737128 (Version 1)
Quarter: 2024Q4

REPORT INFORMATION
  Report Type: Report from Study
  Country: CO (occurrence: CO)
  Receive Date: 20241216
  Receipt Date: 20241216
  Transmission Date: 20250115
  Serious: Yes (Death, Other)
  Sender: IPSEN BIOPHARMACEUTICALS, INC.
  Company Number: CO-IPSEN Group, Research and Development-2024-25510

PATIENT
  Age: 54 Year
  Sex: Male

DRUGS (1)
  1. LANREOTIDE ACETATE [Suspect]
     Active Substance: LANREOTIDE ACETATE
     Indication: Acromegaly
     Dosage: DEEP SUBCUTANEOUS
     Route: 058
     Dates: start: 20240703

REACTIONS (1)
  - Death [Fatal]
